FAERS Safety Report 9512951 (Version 2)
Quarter: 2013Q4

REPORT INFORMATION
  Report Type: Spontaneous
  Country: JP (occurrence: JP)
  Receive Date: 20130910
  Receipt Date: 20131008
  Transmission Date: 20140711
  Serious: Yes (Other)
  Sender: FDA-Public Use
  Company Number: JP-SUCAMPO PHARMA AMERICAS, INC-SPI201300632

PATIENT
  Age: 86 Year
  Sex: Male

DRUGS (6)
  1. AMITIZA [Suspect]
     Indication: CONSTIPATION
     Dosage: 24 MCG, BID
     Route: 048
     Dates: start: 20130517
  2. BLOPRESS [Concomitant]
     Dosage: 4 MG, QD
     Route: 048
     Dates: start: 20110115
  3. MAGLAX [Concomitant]
     Dosage: 500 MG, BID
     Route: 048
     Dates: start: 20120521
  4. ATARAX-P [Concomitant]
     Dosage: UNK
     Route: 048
     Dates: start: 20110115
  5. ALLELOCK [Concomitant]
     Dosage: UNK
     Route: 048
     Dates: start: 20110115
  6. ERYTHROPOIETIN [Concomitant]
     Indication: MYELODYSPLASTIC SYNDROME

REACTIONS (2)
  - White blood cell count decreased [Not Recovered/Not Resolved]
  - Myelodysplastic syndrome [Recovering/Resolving]
